FAERS Safety Report 4886566-6 (Version None)
Quarter: 2006Q1

REPORT INFORMATION
  Report Type: 
  Country: None (occurrence: None)
  Receive Date: 20060118
  Receipt Date: 20060105
  Transmission Date: 20060701
  Serious: Yes (Hospitalization)
  Sender: FDA-Public Use
  Company Number: 177392

PATIENT
  Age: 58 Year
  Sex: Female
  Weight: 88.905 kg

DRUGS (20)
  1. AVONEX [Suspect]
     Indication: MULTIPLE SCLEROSIS
     Dosage: 30 UG; QW; IM
     Route: 030
     Dates: start: 19960101, end: 20030101
  2. AVONEX [Suspect]
     Indication: MULTIPLE SCLEROSIS
     Dosage: 30 UG; QW; IM
     Route: 030
     Dates: start: 20030101
  3. SYNTHROID [Concomitant]
  4. GLIPIZIDE [Concomitant]
  5. GLUCOPHAGE [Concomitant]
  6. WELLBUTRIN [Concomitant]
  7. METHOTREXATE [Concomitant]
  8. ELAVIL [Concomitant]
  9. ZYRTEC [Concomitant]
  10. PROTONIX [Concomitant]
  11. TRIMETHOBENZAMIDE [Concomitant]
  12. METHOTREXATE [Concomitant]
  13. ACTOS [Concomitant]
  14. APEXICONE OINTMENT [PSORIASIS] [Concomitant]
  15. COZAAR [Concomitant]
  16. LIDOCAINE [Concomitant]
  17. ZYRTEC [Concomitant]
  18. HYDROCODONE BITARTRATE [Concomitant]
  19. PRAVACHOL [Concomitant]
  20. LEVOTHYROXINE SODIUM [Concomitant]

REACTIONS (20)
  - ASTHENIA [None]
  - BACK PAIN [None]
  - BLOOD CHOLESTEROL INCREASED [None]
  - CARDIAC DISORDER [None]
  - CEREBROVASCULAR ACCIDENT [None]
  - DEHYDRATION [None]
  - DEPRESSION [None]
  - DISORIENTATION [None]
  - FALL [None]
  - FATIGUE [None]
  - FEELING ABNORMAL [None]
  - INFLUENZA LIKE ILLNESS [None]
  - INSOMNIA [None]
  - MUSCULAR WEAKNESS [None]
  - MYOCARDIAL INFARCTION [None]
  - NAUSEA [None]
  - PAIN [None]
  - SPINAL CORD INFECTION [None]
  - URINARY INCONTINENCE [None]
  - WEIGHT DECREASED [None]
